FAERS Safety Report 4640973-5 (Version None)
Quarter: 2005Q2

REPORT INFORMATION
  Report Type: 
  Country: None (occurrence: None)
  Receive Date: 20050421
  Receipt Date: 20050411
  Transmission Date: 20051028
  Serious: Yes (Hospitalization)
  Sender: FDA-Public Use
  Company Number: GB-BOEHRINGER INGELHEIM PHARMACEUTICALS, INC.-2005-UK-00598UK

PATIENT
  Sex: Female

DRUGS (2)
  1. PRAMIPEXOLE (UK) [Suspect]
     Indication: PARKINSON'S DISEASE
     Dosage: 250 MG THREE TIMES DAILY
     Route: 048
     Dates: start: 20050101
  2. ATENOLOL [Concomitant]
     Dosage: 100 MG DAILY

REACTIONS (2)
  - BLISTER [None]
  - CIRCULATORY COLLAPSE [None]
